FAERS Safety Report 11185470 (Version 1)
Quarter: 2015Q2

REPORT INFORMATION
  Report Type: Spontaneous
  Country: US (occurrence: US)
  Receive Date: 20150612
  Receipt Date: 20150612
  Transmission Date: 20150821
  Serious: No
  Sender: FDA-Public Use
  Company Number: US-DSJP-DSU-2014-121131

PATIENT
  Age: 88 Year
  Sex: Female
  Weight: 77.55 kg

DRUGS (4)
  1. NORVASC [Concomitant]
     Active Substance: AMLODIPINE BESYLATE
     Indication: BLOOD PRESSURE
     Dosage: 10 MG, QD
     Route: 048
     Dates: start: 2002
  2. ISOSORBIDE [Suspect]
     Active Substance: ISOSORBIDE
     Indication: CARDIAC DISORDER
     Dosage: 30 MG, QD
     Route: 048
     Dates: start: 2014, end: 201408
  3. TOPROL XL [Suspect]
     Active Substance: METOPROLOL SUCCINATE
     Indication: PRODUCT USED FOR UNKNOWN INDICATION
     Dosage: UNK, QD
     Route: 048
     Dates: start: 2002, end: 201408
  4. BENICAR [Suspect]
     Active Substance: OLMESARTAN MEDOXOMIL
     Indication: HYPERTENSION
     Dosage: 40 MG, QD
     Route: 048
     Dates: start: 2012

REACTIONS (8)
  - Heart rate decreased [Recovered/Resolved]
  - Asthenia [Not Recovered/Not Resolved]
  - Eye irritation [Not Recovered/Not Resolved]
  - Poor quality sleep [Not Recovered/Not Resolved]
  - Muscle spasms [Not Recovered/Not Resolved]
  - Restlessness [Not Recovered/Not Resolved]
  - Blood pressure decreased [Recovered/Resolved]
  - Fatigue [Not Recovered/Not Resolved]

NARRATIVE: CASE EVENT DATE: 2014
